FAERS Safety Report 16233291 (Version 2)
Quarter: 2019Q2

REPORT INFORMATION
  Report Type: Spontaneous
  Country: US (occurrence: US)
  Receive Date: 20190424
  Receipt Date: 20190424
  Transmission Date: 20190711
  Serious: No
  Sender: FDA-Public Use
  Company Number: US-BAYER-2019-081903

PATIENT
  Age: 37 Year
  Sex: Female

DRUGS (1)
  1. GADAVIST [Suspect]
     Active Substance: GADOBUTROL
     Dosage: UNK UNK, ONCE
     Dates: start: 20190417

REACTIONS (5)
  - Dizziness [Not Recovered/Not Resolved]
  - Palpitations [Not Recovered/Not Resolved]
  - Nausea [None]
  - Hypotension [None]
  - Dyspnoea [None]

NARRATIVE: CASE EVENT DATE: 20190417
